FAERS Safety Report 5923005-8 (Version None)
Quarter: 2008Q4

REPORT INFORMATION
  Report Type: 
  Country: None (occurrence: None)
  Receive Date: 20081018
  Receipt Date: 20081006
  Transmission Date: 20090506
  Serious: Yes (Hospitalization, Other)
  Sender: FDA-Public Use
  Company Number: US-PFIZER INC-2008057755

PATIENT
  Sex: Female
  Weight: 61.2 kg

DRUGS (2)
  1. DILANTIN [Suspect]
     Indication: GRAND MAL CONVULSION
     Dates: start: 19960101, end: 20080101
  2. PHENYTOIN [Suspect]
     Indication: GRAND MAL CONVULSION
     Dates: end: 20070101

REACTIONS (6)
  - ANTICONVULSANT DRUG LEVEL DECREASED [None]
  - CONCUSSION [None]
  - DRUG LEVEL FLUCTUATING [None]
  - GRAND MAL CONVULSION [None]
  - HEAD INJURY [None]
  - PERIORBITAL HAEMATOMA [None]
